FAERS Safety Report 20873982 (Version 1)
Quarter: 2022Q2

REPORT INFORMATION
  Report Type: Spontaneous
  Country: US (occurrence: None)
  Receive Date: 20220525
  Receipt Date: 20220525
  Transmission Date: 20220721
  Serious: No
  Sender: FDA-Public Use
  Company Number: None

PATIENT
  Age: 20 Year
  Sex: Male

DRUGS (1)
  1. ADVATE [Suspect]
     Active Substance: ANTIHEMOPHILIC FACTOR, HUMAN RECOMBINANT
     Indication: Factor VIII deficiency
     Dosage: 3000U 3 TIMES A WEEK PIV BUTTERFLY?
     Route: 050
     Dates: start: 20190605

REACTIONS (2)
  - Limb crushing injury [None]
  - Therapy interrupted [None]

NARRATIVE: CASE EVENT DATE: 20220501
